FAERS Safety Report 16829771 (Version 3)
Quarter: 2019Q4

REPORT INFORMATION
  Report Type: Report from Study
  Country: US (occurrence: US)
  Receive Date: 20190919
  Receipt Date: 20191009
  Transmission Date: 20200122
  Serious: Yes (Hospitalization)
  Sender: FDA-Public Use
  Company Number: US-ACTELION-A-NJ2019-195571

PATIENT
  Age: 72 Year
  Sex: Female

DRUGS (20)
  1. OPSUMIT [Suspect]
     Active Substance: MACITENTAN
     Indication: PULMONARY ARTERIAL HYPERTENSION
     Dosage: 10 MG, QD
     Route: 048
     Dates: start: 20170726
  2. GUIATUSS [Concomitant]
     Active Substance: GUAIFENESIN
  3. DOXICYCLIN [Concomitant]
     Active Substance: DOXYCYCLINE
  4. ATORVASTATIN [Concomitant]
     Active Substance: ATORVASTATIN
  5. LEVOTHYROXIN [Concomitant]
     Active Substance: LEVOTHYROXINE
  6. SPIRONOLACTON [Concomitant]
     Active Substance: SPIRONOLACTONE
  7. AMOXICILLIN + CLAV. POTASSIUM [Concomitant]
     Active Substance: AMOXICILLIN\CLAVULANATE POTASSIUM
  8. AMLODIPINE [Concomitant]
     Active Substance: AMLODIPINE BESYLATE
  9. BUMETANIDE. [Concomitant]
     Active Substance: BUMETANIDE
  10. PREDNISONE. [Concomitant]
     Active Substance: PREDNISONE
  11. CLOPIDEL [Concomitant]
  12. METFORMIN [Concomitant]
     Active Substance: METFORMIN HYDROCHLORIDE
  13. POTASSIUM CHLORIDE. [Concomitant]
     Active Substance: POTASSIUM CHLORIDE
  14. SOTALOL. [Concomitant]
     Active Substance: SOTALOL
  15. ALLOPURINOL. [Concomitant]
     Active Substance: ALLOPURINOL
  16. ISOSORBIDE. [Concomitant]
     Active Substance: ISOSORBIDE
  17. SILDENAFIL. [Suspect]
     Active Substance: SILDENAFIL
     Indication: PULMONARY HYPERTENSION
     Dosage: 20 MG, TID
     Route: 065
     Dates: start: 20190309
  18. CEFUROXIME. [Concomitant]
     Active Substance: CEFUROXIME
  19. CLOPIDOGREL [Concomitant]
     Active Substance: CLOPIDOGREL BISULFATE
  20. METOPROLOL. [Concomitant]
     Active Substance: METOPROLOL

REACTIONS (5)
  - Product dose omission [Unknown]
  - Pneumonia [Unknown]
  - Cardiac disorder [Unknown]
  - Chest pain [Recovered/Resolved]
  - Troponin increased [Recovered/Resolved]

NARRATIVE: CASE EVENT DATE: 20190901
